FAERS Safety Report 18093611 (Version 1)
Quarter: 2020Q3

REPORT INFORMATION
  Report Type: Spontaneous
  Country: CN (occurrence: CN)
  Receive Date: 20200730
  Receipt Date: 20200730
  Transmission Date: 20201103
  Serious: Yes (Other)
  Sender: FDA-Public Use
  Company Number: CN-BAYER-2020-148448

PATIENT
  Age: 38 Year
  Sex: Male

DRUGS (10)
  1. STIVARGA [Suspect]
     Active Substance: REGORAFENIB
     Indication: HEPATIC CANCER
     Dosage: UNK
     Route: 048
     Dates: start: 2019
  2. LOBAPLATIN [Concomitant]
     Active Substance: LOBAPLATIN
     Indication: HEPATIC CANCER
     Dosage: UNK
     Dates: start: 20150309
  3. IODINATED OIL [Concomitant]
     Active Substance: IODINE
     Indication: HEPATIC CANCER
     Dosage: UNK
     Dates: start: 20150309
  4. STIVARGA [Suspect]
     Active Substance: REGORAFENIB
     Indication: HEPATIC CANCER
     Dosage: 120 MG, QD
     Route: 048
  5. NEXAVAR [Suspect]
     Active Substance: SORAFENIB
     Indication: HEPATIC CANCER
     Dosage: 400 MG, BID
     Route: 048
     Dates: start: 20140425
  6. LOBAPLATIN [Concomitant]
     Active Substance: LOBAPLATIN
     Indication: HEPATIC CANCER
     Dosage: UNK
     Dates: start: 20140425
  7. IODINATED OIL [Concomitant]
     Active Substance: IODINE
     Indication: HEPATIC CANCER
     Dosage: UNK
     Dates: start: 20140425
  8. OXALIPLATIN. [Concomitant]
     Active Substance: OXALIPLATIN
     Indication: HEPATIC CANCER
     Dosage: UNK
     Dates: start: 20150123
  9. EPIRUBICIN [Concomitant]
     Active Substance: EPIRUBICIN
     Indication: HEPATIC CANCER
     Dosage: UNK
     Dates: start: 20140425
  10. IODINATED OIL [Concomitant]
     Active Substance: IODINE
     Indication: HEPATIC CANCER
     Dosage: UNK
     Dates: start: 20150123

REACTIONS (6)
  - Platelet count decreased [Recovering/Resolving]
  - Hepatocellular carcinoma [None]
  - Palmar-plantar erythrodysaesthesia syndrome [None]
  - Hypersplenism [None]
  - White blood cell count decreased [Recovering/Resolving]
  - Marrow hyperplasia [None]

NARRATIVE: CASE EVENT DATE: 20140905
